FAERS Safety Report 4466696-3 (Version None)
Quarter: 2004Q4

REPORT INFORMATION
  Report Type: 
  Country: None (occurrence: None)
  Receive Date: 20041001
  Receipt Date: 20041001
  Transmission Date: 20050328
  Serious: Yes (Death)
  Sender: FDA-Public Use
  Company Number: None

PATIENT
  Age: 83 Year
  Sex: Female
  Weight: 68.0396 kg

DRUGS (1)
  1. VIOXX [Suspect]
     Indication: OSTEOARTHRITIS
     Dosage: 1 PER DAY ORAL
     Route: 048

REACTIONS (5)
  - ABDOMINAL PAIN [None]
  - FEELING ABNORMAL [None]
  - MYOCARDIAL INFARCTION [None]
  - PAIN [None]
  - SPEECH DISORDER [None]
